FAERS Safety Report 8911944 (Version 1)
Quarter: 2012Q4

REPORT INFORMATION
  Report Type: 
  Country: US (occurrence: US)
  Receive Date: 20121116
  Receipt Date: 20121116
  Transmission Date: 20130627
  Serious: No
  Sender: FDA-Public Use
  Company Number: US-PFIZER INC-2012286797

PATIENT
  Age: 65 Year
  Sex: Female
  Weight: 64.4 kg

DRUGS (8)
  1. CHANTIX [Suspect]
     Indication: SMOKING CESSATION THERAPY
     Dosage: 0.5 mg, 2x/day
     Route: 048
     Dates: start: 201211, end: 201211
  2. CHANTIX [Suspect]
     Dosage: 1 mg, UNK
     Route: 048
     Dates: start: 201211, end: 201211
  3. CHANTIX [Suspect]
     Dosage: UNK
     Route: 048
     Dates: start: 201211
  4. CHLORDIAZEPOXIDE/CLIDINIUM [Concomitant]
     Dosage: UNK
  5. SIMVASTATIN [Concomitant]
     Indication: HEART DISORDER
     Dosage: 80 mg, UNK
  6. ATENOLOL [Concomitant]
     Indication: BLOOD PRESSURE HIGH
     Dosage: UNK
  7. GEMFIBROZIL [Concomitant]
     Dosage: 600 mg, UNK
  8. PREVACID [Concomitant]
     Dosage: UNK

REACTIONS (1)
  - Stomatitis [Not Recovered/Not Resolved]
